FAERS Safety Report 7220803-8 (Version None)
Quarter: 2011Q1

REPORT INFORMATION
  Report Type: 
  Country: None (occurrence: None)
  Receive Date: 20110112
  Receipt Date: 20101231
  Transmission Date: 20110831
  Serious: Yes (Other)
  Sender: FDA-Public Use
  Company Number: US-BIOGENIDEC-2011BI000450

PATIENT
  Age: 41 Year
  Sex: Female
  Weight: 81 kg

DRUGS (1)
  1. TYSABRI [Suspect]
     Indication: MULTIPLE SCLEROSIS
     Route: 042
     Dates: start: 20090228

REACTIONS (10)
  - MOBILITY DECREASED [None]
  - ULNAR NERVE INJURY [None]
  - HYPOAESTHESIA [None]
  - PERONEAL NERVE PALSY [None]
  - JOINT DISLOCATION [None]
  - FALL [None]
  - PARAESTHESIA [None]
  - THROMBOSIS [None]
  - NERVE COMPRESSION [None]
  - BALANCE DISORDER [None]
